FAERS Safety Report 9285891 (Version 2)
Quarter: 2013Q3

REPORT INFORMATION
  Report Type: Spontaneous
  Country: US (occurrence: US)
  Receive Date: 20130513
  Receipt Date: 20130903
  Transmission Date: 20140515
  Serious: Yes (Hospitalization)
  Sender: FDA-Public Use
  Company Number: US-BAYER-2013-058672

PATIENT
  Age: 27 Year
  Sex: Female

DRUGS (9)
  1. YAZ [Suspect]
     Dosage: UNK
     Dates: start: 2005, end: 2007
  2. YASMIN [Suspect]
     Dosage: UNK
     Dates: start: 2005, end: 2007
  3. OCELLA [Suspect]
     Dosage: UNK
     Dates: start: 2005, end: 2007
  4. WELLBUTRIN [Concomitant]
  5. PROZAC [Concomitant]
     Dosage: 40 MG, EVERY DAY
  6. TOPAMAX [Concomitant]
  7. RESTORIL [Concomitant]
  8. FLEXERIL [Concomitant]
  9. NAPROXEN SODIUM [Concomitant]

REACTIONS (8)
  - Pulmonary embolism [None]
  - Pain [None]
  - Injury [None]
  - General physical health deterioration [None]
  - Anxiety [None]
  - Emotional distress [None]
  - Abdominal pain [None]
  - Pain [None]
